FAERS Safety Report 13231147 (Version 2)
Quarter: 2017Q1

REPORT INFORMATION
  Report Type: Spontaneous
  Country: JP (occurrence: JP)
  Receive Date: 20170214
  Receipt Date: 20170323
  Transmission Date: 20170428
  Serious: Yes (Hospitalization, Other)
  Sender: FDA-Public Use
  Company Number: JP-BAYER-2017-029070

PATIENT
  Age: 37 Year
  Sex: Female

DRUGS (11)
  1. POLYCARBOPHIL CALCIUM [Concomitant]
     Active Substance: CALCIUM POLYCARBOPHIL
     Indication: IRRITABLE BOWEL SYNDROME
     Dosage: DAILY DOSE 1.8 G
     Route: 048
     Dates: start: 20151030
  2. BROTIZOLAM [Concomitant]
     Active Substance: BROTIZOLAM
     Indication: DEPRESSION
     Dosage: DAILY DOSE .25 MG
     Route: 048
     Dates: start: 20080219
  3. LAC-B [Concomitant]
     Active Substance: BIFIDOBACTERIUM SPP.
     Indication: IRRITABLE BOWEL SYNDROME
     Dosage: DAILY DOSE 3 G
     Route: 048
     Dates: start: 20151030
  4. DUPHASTON [Concomitant]
     Active Substance: DYDROGESTERONE
     Dosage: DAILY DOSE 10 MG
     Route: 048
     Dates: start: 20141215, end: 20161027
  5. TEPRENONE [Concomitant]
     Active Substance: TEPRENONE
     Indication: IRRITABLE BOWEL SYNDROME
     Dosage: DAILY DOSE 150 MG
     Route: 048
     Dates: start: 20151030
  6. YAZ [Suspect]
     Active Substance: DROSPIRENONE\ETHINYL ESTRADIOL
     Indication: MENORRHAGIA
     Dosage: DAILY DOSE 1 DF
     Route: 048
     Dates: start: 20161028, end: 20170209
  7. ETIZOLAM [Concomitant]
     Active Substance: ETIZOLAM
     Indication: DEPRESSION
     Dosage: DAILY DOSE 1 MG
     Route: 048
     Dates: start: 20080219
  8. YAZ [Suspect]
     Active Substance: DROSPIRENONE\ETHINYL ESTRADIOL
     Indication: DYSMENORRHOEA
     Dosage: UNK
     Route: 048
     Dates: start: 20131013, end: 20141215
  9. PAXIL [Concomitant]
     Active Substance: PAROXETINE HYDROCHLORIDE
     Indication: DEPRESSION
     Dosage: DAILY DOSE 20 MG
     Route: 048
     Dates: start: 20080219, end: 20170205
  10. MAGMITT [Concomitant]
     Active Substance: MAGNESIUM OXIDE
     Indication: CONSTIPATION
     Dosage: DAILY DOSE 660 MG
     Route: 048
     Dates: start: 20151228
  11. ROZEREM [Concomitant]
     Active Substance: RAMELTEON
     Indication: DEPRESSION
     Dosage: DAILY DOSE 8 MG
     Route: 048
     Dates: start: 20130909

REACTIONS (19)
  - Pneumonia [None]
  - Dyspnoea exertional [Recovering/Resolving]
  - Ulna fracture [None]
  - Panic attack [None]
  - Pericardial effusion [None]
  - Hepatic congestion [Recovering/Resolving]
  - Decreased appetite [None]
  - Flashback [None]
  - Post-traumatic stress disorder [None]
  - Pain in extremity [None]
  - Nasopharyngitis [None]
  - Road traffic accident [None]
  - Pulmonary infarction [Recovering/Resolving]
  - Deep vein thrombosis [Recovering/Resolving]
  - Radius fracture [None]
  - Dehydration [None]
  - Dyspnoea [None]
  - Productive cough [None]
  - Brain natriuretic peptide increased [None]

NARRATIVE: CASE EVENT DATE: 20141215
